FAERS Safety Report 24970996 (Version 2)
Quarter: 2025Q1

REPORT INFORMATION
  Report Type: Spontaneous
  Country: IT (occurrence: IT)
  Receive Date: 20250214
  Receipt Date: 20250303
  Transmission Date: 20250408
  Serious: Yes (Life-Threatening, Other)
  Sender: MYLAN
  Company Number: None

PATIENT
  Age: 22 Year
  Sex: Male
  Weight: 90 kg

DRUGS (5)
  1. XANAX [Suspect]
     Active Substance: ALPRAZOLAM
     Indication: Product used for unknown indication
     Dosage: 10 MILLIGRAM, QD (PACK OF XANAX 0.5 WITH 2 BLISTERS, 20 CP TOTAL EMPTY)
     Dates: start: 20220709, end: 20220709
  2. VENLAFAXINE HYDROCHLORIDE [Suspect]
     Active Substance: VENLAFAXINE HYDROCHLORIDE
     Indication: Product used for unknown indication
     Dosage: 3070 MILLIGRAM, QD (3 EMPTY BLISTERS OF 8 CP EACH (TOT 24 CP) OF 37.5 MG + 2 EMPTY BLISTERS (28 CP
     Dates: start: 20220709, end: 20220709
  3. ARIPIPRAZOLE [Suspect]
     Active Substance: ARIPIPRAZOLE
     Indication: Product used for unknown indication
     Dosage: 420 MILLIGRAM, QD (BLISTERS OF 7 CP EACH (TOT 42 CP( AS REPORTED)) ARIPIPRAZOLE 10 MG)
     Dates: start: 20220709, end: 20220709
  4. TEGRETOL [Suspect]
     Active Substance: CARBAMAZEPINE
     Indication: Product used for unknown indication
     Dosage: 26 GRAM, QD (12 BLISTERS OF 10 CP (120 TABLETS) TEGRETOL 200 MG + 1 BLISTER (10 TABLETS TEGRETOL 200
     Dates: start: 20220709, end: 20220709
  5. TACHIPIRINA [Suspect]
     Active Substance: ACETAMINOPHEN
     Indication: Product used for unknown indication
     Dosage: 2000 MILLIGRAM, QD (1 BLISTER OF TACHIPIRINA 500 MG WITH CP MISSING)
     Dates: start: 20220709, end: 20220709

REACTIONS (5)
  - Drug abuse [Recovered/Resolved]
  - Intentional self-injury [Recovered/Resolved]
  - Coma [Recovered/Resolved]
  - Psychomotor hyperactivity [Recovered/Resolved]
  - Aggression [Recovered/Resolved]

NARRATIVE: CASE EVENT DATE: 20220709
